FAERS Safety Report 13654785 (Version 1)
Quarter: 2017Q2

REPORT INFORMATION
  Report Type: Spontaneous
  Country: US (occurrence: US)
  Receive Date: 20170614
  Receipt Date: 20170614
  Transmission Date: 20170830
  Serious: Yes (Disabling)
  Sender: FDA-Public Use
  Company Number: None

PATIENT
  Age: 64 Year
  Sex: Male
  Weight: 112.5 kg

DRUGS (5)
  1. IODINE. [Concomitant]
     Active Substance: IODINE
  2. SYNTHROID [Concomitant]
     Active Substance: LEVOTHYROXINE SODIUM
  3. HUMALOG [Concomitant]
     Active Substance: INSULIN LISPRO
  4. BASAGLAR [Suspect]
     Active Substance: INSULIN GLARGINE
     Indication: TYPE 2 DIABETES MELLITUS
     Dosage: ?          OTHER STRENGTH:U/ML;QUANTITY:150 UNITS;OTHER ROUTE:SUBCUTANEOUSLY?
     Route: 058
  5. ASPIRIN. [Concomitant]
     Active Substance: ASPIRIN

REACTIONS (3)
  - Product packaging confusion [None]
  - Hypoglycaemia [None]
  - Extra dose administered [None]

NARRATIVE: CASE EVENT DATE: 20170611
